FAERS Safety Report 6694324-5 (Version None)
Quarter: 2010Q2

REPORT INFORMATION
  Report Type: 
  Country: None (occurrence: None)
  Receive Date: 20100423
  Receipt Date: 20100413
  Transmission Date: 20101027
  Serious: Yes (Hospitalization)
  Sender: FDA-Public Use
  Company Number: NL-PFIZER INC-2010008832

PATIENT
  Sex: Male

DRUGS (4)
  1. SOMAVERT [Suspect]
     Indication: ACROMEGALY
     Dosage: 10 MG, UNK
     Route: 058
  2. SOMATOLINE [Suspect]
     Dosage: UNK
  3. ABILIFY [Concomitant]
     Dosage: 7.5 MG, 2X/DAY
  4. DARIFENACIN [Concomitant]
     Dosage: 10 MG, UNK

REACTIONS (1)
  - PSYCHOTIC DISORDER [None]
